FAERS Safety Report 5737291-0 (Version None)
Quarter: 2008Q2

REPORT INFORMATION
  Report Type: 
  Country: None (occurrence: None)
  Receive Date: 20080512
  Receipt Date: 20080512
  Transmission Date: 20081010
  Serious: Yes (Hospitalization)
  Sender: FDA-Public Use
  Company Number: None

PATIENT
  Age: 46 Year
  Sex: Female
  Weight: 74.8435 kg

DRUGS (1)
  1. DIGOXIN 125 MCG DIGOXIN [Suspect]
     Indication: CARDIAC DISORDER
     Dosage: 1 DAY PO
     Route: 048
     Dates: start: 20080306, end: 20080508

REACTIONS (3)
  - HEART RATE IRREGULAR [None]
  - HYPOTENSION [None]
  - PHARMACEUTICAL PRODUCT COMPLAINT [None]
